FAERS Safety Report 7861248-7 (Version None)
Quarter: 2011Q4

REPORT INFORMATION
  Report Type: 
  Country: None (occurrence: None)
  Receive Date: 20111027
  Receipt Date: 20111019
  Transmission Date: 20120403
  Serious: No
  Sender: FDA-Public Use
  Company Number: GB-ABBOTT-11P-167-0855127-00

PATIENT
  Sex: Female

DRUGS (5)
  1. EZETIMIBE [Suspect]
     Indication: HYPERCHOLESTEROLAEMIA
     Route: 048
     Dates: end: 20110902
  2. BEZAFIBRATE [Suspect]
     Indication: HYPERLIPIDAEMIA
     Route: 048
     Dates: end: 20110902
  3. OMEPRAZOLE [Suspect]
     Indication: GASTROOESOPHAGEAL REFLUX DISEASE
     Route: 048
     Dates: end: 20110831
  4. PENTASA [Suspect]
     Indication: CROHN'S DISEASE
     Route: 048
     Dates: end: 20110831
  5. HUMIRA [Suspect]
     Indication: CROHN'S DISEASE
     Route: 058
     Dates: start: 20110602, end: 20110831

REACTIONS (3)
  - PLATELET COUNT DECREASED [None]
  - PLATELET AGGREGATION ABNORMAL [None]
  - CONTUSION [None]
